FAERS Safety Report 9015351 (Version 1)
Quarter: 2013Q1

REPORT INFORMATION
  Report Type: Spontaneous
  Country: US (occurrence: None)
  Receive Date: 20130109
  Receipt Date: 20130109
  Transmission Date: 20140127
  Serious: No
  Sender: FDA-Public Use
  Company Number: None

PATIENT
  Age: 81 Year
  Sex: Female
  Weight: 65.32 kg

DRUGS (2)
  1. CARBIDOPA + LEVODOPA [Suspect]
     Indication: PARKINSON^S DISEASE
     Dosage: 3X DAY?4X DAY
     Dates: start: 200907
  2. PACEMAKER [Concomitant]

REACTIONS (3)
  - Gait disturbance [None]
  - Product substitution issue [None]
  - Dysstasia [None]
